FAERS Safety Report 5286817-2 (Version None)
Quarter: 2007Q2

REPORT INFORMATION
  Report Type: 
  Country: None (occurrence: None)
  Receive Date: 20070404
  Receipt Date: 20070329
  Transmission Date: 20071010
  Serious: Yes (Other)
  Sender: FDA-Public Use
  Company Number: NO-SHR-NO-2007-011601

PATIENT
  Age: 1 Day
  Sex: Female

DRUGS (1)
  1. LEVONORGESTREL [Suspect]
     Indication: CONTRACEPTION
     Dosage: 20 A?G/DAY, CONT
     Route: 064
     Dates: start: 20060926

REACTIONS (2)
  - PREMATURE BABY [None]
  - TRISOMY 21 [None]
